FAERS Safety Report 19190964 (Version 1)
Quarter: 2021Q2

REPORT INFORMATION
  Report Type: Report from Study
  Country: US (occurrence: US)
  Receive Date: 20210428
  Receipt Date: 20210428
  Transmission Date: 20210717
  Serious: No
  Sender: FDA-Public Use
  Company Number: US-FRESENIUS KABI-FK202104237

PATIENT
  Age: 20 Year
  Sex: Male
  Weight: 104.42 kg

DRUGS (1)
  1. ICATIBANT INJECTION FRESENIUS KABI [Suspect]
     Active Substance: ICATIBANT ACETATE
     Indication: HEREDITARY ANGIOEDEMA
     Route: 065
     Dates: start: 20210414, end: 20210414

REACTIONS (7)
  - Fatigue [Recovering/Resolving]
  - Chest pain [Recovering/Resolving]
  - Acute stress disorder [Recovering/Resolving]
  - Nausea [Recovering/Resolving]
  - Pain [Recovering/Resolving]
  - Muscle spasms [Recovering/Resolving]
  - Dyspnoea [Recovering/Resolving]

NARRATIVE: CASE EVENT DATE: 20210414
